FAERS Safety Report 24702350 (Version 1)
Quarter: 2024Q4

REPORT INFORMATION
  Report Type: Spontaneous
  Country: BR (occurrence: BR)
  Receive Date: 20241205
  Receipt Date: 20241205
  Transmission Date: 20250115
  Serious: Yes (Life-Threatening, Other)
  Sender: JOHNSON AND JOHNSON
  Company Number: BR-JNJFOC-20241206560

PATIENT
  Age: 29 Year
  Sex: Female

DRUGS (4)
  1. SPRAVATO [Suspect]
     Active Substance: ESKETAMINE
     Indication: Depression
     Route: 045
  2. VENLAFAXINE [Concomitant]
     Active Substance: VENLAFAXINE HYDROCHLORIDE
  3. LITHIUM [Concomitant]
     Active Substance: LITHIUM
  4. LURASIDONE [Concomitant]
     Active Substance: LURASIDONE

REACTIONS (1)
  - Suicidal ideation [Unknown]
